FAERS Safety Report 20191557 (Version 9)
Quarter: 2024Q3

REPORT INFORMATION
  Report Type: Spontaneous
  Country: PL (occurrence: PL)
  Receive Date: 20211216
  Receipt Date: 20240913
  Transmission Date: 20241016
  Serious: Yes (Hospitalization, Disabling, Other)
  Sender: JOHNSON AND JOHNSON
  Company Number: PL-BAUSCH-BL-2021-036935

PATIENT
  Age: 83 Year
  Sex: Female
  Weight: 91 kg

DRUGS (32)
  1. TRAMADOL HYDROCHLORIDE [Interacting]
     Active Substance: TRAMADOL HYDROCHLORIDE
     Indication: Pain
     Dosage: 100 MILLIGRAM, 2/DAY
     Route: 048
  2. TRAMADOL HYDROCHLORIDE [Interacting]
     Active Substance: TRAMADOL HYDROCHLORIDE
     Dosage: 50 MILLIGRAM
     Route: 065
  3. FUROSEMIDE [Interacting]
     Active Substance: FUROSEMIDE
     Dosage: 40 MG, TID (3/DAY)
     Route: 065
  4. HYDROXYZINE [Interacting]
     Active Substance: HYDROXYZINE HYDROCHLORIDE
     Dosage: 25 MILLIGRAM, 2/DAY
     Route: 065
  5. ZOLPIDEM [Interacting]
     Active Substance: ZOLPIDEM TARTRATE
     Dosage: 10 MILLIGRAM, 1/DAY
     Route: 065
  6. CITALOPRAM [Suspect]
     Active Substance: CITALOPRAM\CITALOPRAM HYDROBROMIDE
     Dosage: 40 MILLIGRAM, 1/DAY
     Route: 065
  7. OMEPRAZOLE [Interacting]
     Active Substance: OMEPRAZOLE
     Dosage: 20 MILLIGRAM, 2/DAY
     Route: 065
  8. LEVOTHYROXINE [Interacting]
     Active Substance: LEVOTHYROXINE\LEVOTHYROXINE SODIUM
     Dosage: 100 MICROGRAM, 1/DAY
     Route: 065
  9. LEVOTHYROXINE [Interacting]
     Active Substance: LEVOTHYROXINE\LEVOTHYROXINE SODIUM
     Dosage: 100 MICROGRAM, 1/DAY
     Route: 065
  10. ALBUTEROL [Suspect]
     Active Substance: ALBUTEROL
     Dosage: 100 MICROGRAM
     Route: 065
  11. ALPRAZOLAM [Interacting]
     Active Substance: ALPRAZOLAM
     Dosage: 0.5 MILLIGRAM, 2/DAY
     Route: 065
  12. ATORVASTATIN [Suspect]
     Active Substance: ATORVASTATIN
     Dosage: 20 MILLIGRAM, 1/DAY
     Route: 065
  13. METOCLOPRAMIDE [Suspect]
     Active Substance: METOCLOPRAMIDE
     Dosage: 2 DOSAGE FORM
     Route: 065
  14. RAMIPRIL [Interacting]
     Active Substance: RAMIPRIL
     Dosage: 1 DOSAGE FORM, 1/DAY
     Route: 065
  15. RAMIPRIL [Interacting]
     Active Substance: RAMIPRIL
     Dosage: 5 MILLIGRAM, 1/DAY
     Route: 065
  16. DEXTROSE\NIKETHAMIDE [Interacting]
     Active Substance: DEXTROSE\NIKETHAMIDE
     Dosage: UNK
     Route: 065
  17. ALLOPURINOL [Interacting]
     Active Substance: ALLOPURINOL
     Dosage: 100 MILLIGRAM, 1/DAY
     Route: 065
  18. ALLOPURINOL [Interacting]
     Active Substance: ALLOPURINOL
     Dosage: 100 MILLIGRAM, 1/DAY
     Route: 065
  19. POTASSIUM CHLORIDE [Interacting]
     Active Substance: POTASSIUM CHLORIDE
     Dosage: 1 DOSAGE FORM, EVERY 2 DAYS
     Route: 065
  20. DABIGATRAN [Interacting]
     Active Substance: DABIGATRAN
     Dosage: 110 MILLIGRAM, 2/DAY
     Route: 065
  21. ACETAMINOPHEN [Interacting]
     Active Substance: ACETAMINOPHEN
     Dosage: 500 MILLIGRAM, 2/DAY
     Route: 065
  22. HYDROCHLOROTHIAZIDE [Interacting]
     Active Substance: HYDROCHLOROTHIAZIDE
     Dosage: 25 MILLIGRAM, 1/DAY
     Route: 065
  23. GLICLAZIDE [Interacting]
     Active Substance: GLICLAZIDE
     Dosage: 60 MILLIGRAM, 3/DAY
     Route: 065
  24. METOPROLOL [Interacting]
     Active Substance: METOPROLOL
     Dosage: 50 MILLIGRAM, 2/DAY
     Route: 065
  25. SPIRONOLACTONE [Interacting]
     Active Substance: SPIRONOLACTONE
     Dosage: 100 MILLIGRAM, 1/DAY
     Route: 065
  26. ISOSORBIDE MONONITRATE [Suspect]
     Active Substance: ISOSORBIDE MONONITRATE
     Dosage: 50 MILLIGRAM
     Route: 065
  27. BETAHISTINE [Interacting]
     Active Substance: BETAHISTINE
     Dosage: 24 MILLIGRAM, 1/DAY
     Route: 065
  28. HYDROXYZINE [Suspect]
     Active Substance: HYDROXYZINE HYDROCHLORIDE
     Dosage: 40 MILLIGRAM, 1/DAY
     Route: 065
  29. VORTIOXETINE [Suspect]
     Active Substance: VORTIOXETINE HYDROBROMIDE
     Dosage: 10 MILLIGRAM, 1/DAY
     Route: 065
  30. METFORMIN [Interacting]
     Active Substance: METFORMIN HYDROCHLORIDE
     Dosage: UNK
     Route: 065
  31. QUETIAPINE [Concomitant]
     Active Substance: QUETIAPINE
     Dosage: 25 MILLIGRAM, 1/DAY
     Route: 065
  32. TORSEMIDE [Concomitant]
     Active Substance: TORSEMIDE
     Dosage: 5 MILLIGRAM, 1/DAY
     Route: 065

REACTIONS (54)
  - Parkinsonism [Unknown]
  - Peripheral circulatory failure [Unknown]
  - Hypoglycaemia [Unknown]
  - Multiple drug therapy [Unknown]
  - Syncope [Recovering/Resolving]
  - Fall [Recovering/Resolving]
  - Hyponatraemia [Unknown]
  - Osteoporosis [Unknown]
  - Cognitive disorder [Unknown]
  - Hypotension [Recovering/Resolving]
  - Diabetes mellitus inadequate control [Unknown]
  - Depression [Unknown]
  - Blood pressure decreased [Unknown]
  - Hypotonia [Unknown]
  - Vertigo [Unknown]
  - Pruritus [Unknown]
  - Initial insomnia [Unknown]
  - Constipation [Unknown]
  - Nausea [Unknown]
  - Arthralgia [Unknown]
  - Abdominal pain upper [Unknown]
  - Dizziness [Recovering/Resolving]
  - Drug interaction [Unknown]
  - Drug interaction [Unknown]
  - Drug interaction [Unknown]
  - Drug interaction [Unknown]
  - Drug interaction [Unknown]
  - Drug interaction [Unknown]
  - Drug interaction [Unknown]
  - Drug interaction [Unknown]
  - Drug interaction [Unknown]
  - Drug interaction [Unknown]
  - Drug interaction [Unknown]
  - Drug interaction [Unknown]
  - Drug interaction [Unknown]
  - Drug interaction [Unknown]
  - Drug interaction [Unknown]
  - Drug interaction [Unknown]
  - Drug interaction [Unknown]
  - Drug interaction [Unknown]
  - Drug interaction [Unknown]
  - Drug interaction [Unknown]
  - Drug interaction [Unknown]
  - Drug interaction [Unknown]
  - Drug interaction [Unknown]
  - Melaena [Unknown]
  - Blood potassium increased [Unknown]
  - Blood urea increased [Unknown]
  - Product administration error [Unknown]
  - Dementia [Unknown]
  - Blood cholesterol decreased [Unknown]
  - Urinary retention [Unknown]
  - Blood creatine increased [Unknown]
  - Sedation [Recovering/Resolving]

NARRATIVE: CASE EVENT DATE: 20210101
